FAERS Safety Report 14894999 (Version 1)
Quarter: 2018Q2

REPORT INFORMATION
  Report Type: Spontaneous
  Country: US (occurrence: US)
  Receive Date: 20180515
  Receipt Date: 20180515
  Transmission Date: 20180711
  Serious: No
  Sender: FDA-Public Use
  Company Number: PHEH2018US018090

PATIENT
  Sex: Female

DRUGS (2)
  1. AMANTADINE. [Suspect]
     Active Substance: AMANTADINE HYDROCHLORIDE
     Indication: DYSKINESIA
     Dosage: UNK UNK, TID
     Route: 065
  2. AMANTADINE. [Suspect]
     Active Substance: AMANTADINE HYDROCHLORIDE
     Dosage: 100 MG, UNK
     Route: 065

REACTIONS (3)
  - Dyskinesia [Recovering/Resolving]
  - Rash [Unknown]
  - Gait disturbance [Recovering/Resolving]
